FAERS Safety Report 13218982 (Version 1)
Quarter: 2017Q1

REPORT INFORMATION
  Report Type: Other
  Country: US (occurrence: US)
  Receive Date: 20170210
  Receipt Date: 20170210
  Transmission Date: 20170428
  Serious: No
  Sender: FDA-Public Use
  Company Number: US-ACORDA-ACO_122672_2016

PATIENT
  Age: 49 Year
  Sex: Female

DRUGS (3)
  1. AMPYRA [Suspect]
     Active Substance: DALFAMPRIDINE
     Indication: MULTIPLE SCLEROSIS
     Dosage: 10 MG, Q 12 HRS
     Route: 048
  2. AMPYRA [Suspect]
     Active Substance: DALFAMPRIDINE
     Indication: CONFUSIONAL STATE
  3. AMPYRA [Suspect]
     Active Substance: DALFAMPRIDINE
     Indication: FALL

REACTIONS (4)
  - Thinking abnormal [Recovering/Resolving]
  - Confusional state [Not Recovered/Not Resolved]
  - Off label use [Unknown]
  - Gait disturbance [Unknown]

NARRATIVE: CASE EVENT DATE: 2016
